FAERS Safety Report 7159045-3 (Version None)
Quarter: 2010Q4

REPORT INFORMATION
  Report Type: 
  Country: None (occurrence: None)
  Receive Date: 20101214
  Receipt Date: 20101203
  Transmission Date: 20110411
  Serious: Yes (Hospitalization)
  Sender: FDA-Public Use
  Company Number: US-ELI_LILLY_AND_COMPANY-US201012001242

PATIENT
  Sex: Female
  Weight: 64.853 kg

DRUGS (12)
  1. BYETTA [Suspect]
     Indication: TYPE 2 DIABETES MELLITUS
     Dosage: 5 UG, 2/D
     Route: 058
     Dates: start: 20050101, end: 20050101
  2. BYETTA [Suspect]
     Dosage: 10 UG, 2/D
     Route: 058
     Dates: start: 20050101, end: 20080601
  3. BYETTA [Suspect]
     Dosage: 5 UG, 2/D
     Route: 058
     Dates: start: 20100801, end: 20100901
  4. BYETTA [Suspect]
     Dosage: 10 UG, 2/D
     Route: 058
     Dates: start: 20100901
  5. GLIPIZIDE [Concomitant]
     Indication: TYPE 2 DIABETES MELLITUS
     Dosage: 2.5 MG, DAILY (1/D)
     Route: 048
  6. GLIPIZIDE [Concomitant]
     Dosage: 5 MG, DAILY (1/D)
     Route: 048
  7. GLUCOPHAGE [Concomitant]
     Indication: TYPE 2 DIABETES MELLITUS
     Dosage: 1000 MG, 2/D
     Route: 048
  8. IMDUR [Concomitant]
     Indication: CARDIAC DISORDER
     Dosage: 15 MG, DAILY (1/D)
     Route: 048
  9. ACIDOPHILUS [Concomitant]
     Indication: PRODUCT USED FOR UNKNOWN INDICATION
     Dosage: UNK, DAILY (1/D)
     Route: 048
  10. SPIRONOLACTONE [Concomitant]
     Indication: CARDIAC DISORDER
     Dosage: 50 MG, DAILY (1/D)
     Route: 048
  11. NEXIUM [Concomitant]
     Indication: DYSPEPSIA
     Dosage: 40 MG, AS NEEDED
     Route: 048
  12. NITROGLYCERIN [Concomitant]
     Indication: CHEST PAIN
     Dosage: 0.4 MG, AS NEEDED
     Route: 060

REACTIONS (10)
  - BACK PAIN [None]
  - BLOOD GLUCOSE INCREASED [None]
  - CHEST PAIN [None]
  - CORONARY ARTERY OCCLUSION [None]
  - DYSPEPSIA [None]
  - FATIGUE [None]
  - GLYCOSYLATED HAEMOGLOBIN INCREASED [None]
  - NAUSEA [None]
  - PANCREATIC ENZYMES INCREASED [None]
  - WEIGHT DECREASED [None]
